FAERS Safety Report 6900661-9 (Version None)
Quarter: 2010Q3

REPORT INFORMATION
  Report Type: 
  Country: None (occurrence: None)
  Receive Date: 20100803
  Receipt Date: 20100726
  Transmission Date: 20110219
  Serious: Yes (Other)
  Sender: FDA-Public Use
  Company Number: US-JNJFOC-20100708487

PATIENT
  Sex: Male
  Weight: 120.66 kg

DRUGS (7)
  1. FENTANYL CITRATE [Suspect]
     Indication: BACK PAIN
     Route: 062
  2. METFORMIN HCL [Concomitant]
     Indication: DIABETES MELLITUS
     Route: 048
  3. XANAX [Concomitant]
     Indication: ANXIETY
     Route: 048
  4. RESTORIL [Concomitant]
     Indication: SLEEP DISORDER
     Route: 048
  5. PERCOCET [Concomitant]
     Indication: PAIN
     Dosage: 2 TABLETS
     Route: 048
  6. NOVOLIN 70/30 [Concomitant]
     Indication: DIABETES MELLITUS
     Route: 050
  7. UNKNOWN MEDICATION [Concomitant]
     Route: 065

REACTIONS (6)
  - ABSCESS [None]
  - BLOOD GLUCOSE INCREASED [None]
  - DRUG EFFECT DECREASED [None]
  - INCORRECT DRUG ADMINISTRATION DURATION [None]
  - WEIGHT DECREASED [None]
  - WRONG TECHNIQUE IN DRUG USAGE PROCESS [None]
